FAERS Safety Report 15698555 (Version 1)
Quarter: 2018Q4

REPORT INFORMATION
  Report Type: Spontaneous
  Country: AU (occurrence: AU)
  Receive Date: 20181207
  Receipt Date: 20181207
  Transmission Date: 20190205
  Serious: Yes (Other)
  Sender: FDA-Public Use
  Company Number: AU-BAUSCH-BL-2018-033915

PATIENT
  Age: 63 Year
  Sex: Male

DRUGS (2)
  1. DEXAMETHASONE. [Suspect]
     Active Substance: DEXAMETHASONE
     Indication: PLASMA CELL MYELOMA
     Dosage: DAYS 1, 8, 15 AND 22; CYCLICAL
     Route: 065
  2. LENALIDOMIDE [Suspect]
     Active Substance: LENALIDOMIDE
     Indication: PLASMA CELL MYELOMA
     Dosage: LENALIDOMIDE 25 MG DAILY (DAYS 1-21); CYCLICAL
     Route: 065

REACTIONS (6)
  - Ageusia [Unknown]
  - Lethargy [Unknown]
  - Emotional poverty [Unknown]
  - Quality of life decreased [Unknown]
  - Disturbance in attention [Unknown]
  - Fatigue [Unknown]
